FAERS Safety Report 6202823-5 (Version None)
Quarter: 2009Q2

REPORT INFORMATION
  Report Type: 
  Country: None (occurrence: None)
  Receive Date: 20090519
  Receipt Date: 20090511
  Transmission Date: 20091009
  Serious: Yes (Other)
  Sender: FDA-Public Use
  Company Number: FABR-1000672

PATIENT
  Age: 17 Year
  Sex: Male
  Weight: 30 kg

DRUGS (2)
  1. FABRAZYME [Suspect]
     Indication: FABRY'S DISEASE
     Dosage: 35 MG, Q2W, INTRAVENOUS
     Route: 042
     Dates: start: 20060506, end: 20090224
  2. AVIL (PHENIRAMINE MALEATE) [Concomitant]

REACTIONS (3)
  - DYSPNOEA [None]
  - EYELID OEDEMA [None]
  - URTICARIA [None]
